FAERS Safety Report 7294262-3 (Version None)
Quarter: 2011Q1

REPORT INFORMATION
  Report Type: 
  Country: None (occurrence: None)
  Receive Date: 20110215
  Receipt Date: 20110208
  Transmission Date: 20110831
  Serious: Yes (Hospitalization, Other)
  Sender: FDA-Public Use
  Company Number: JP-GENENTECH-312518

PATIENT
  Age: 75 Year
  Sex: Male

DRUGS (8)
  1. ONCOVIN [Concomitant]
     Indication: LYMPHOMA
     Dosage: 1 MG, UNK
  2. POLARAMINE [Concomitant]
     Indication: PRODUCT USED FOR UNKNOWN INDICATION
     Dosage: 5 MG, UNK
  3. KYTRIL [Concomitant]
     Indication: PRODUCT USED FOR UNKNOWN INDICATION
     Dosage: 3 MG, UNK
  4. PREDONINE [Concomitant]
     Indication: LYMPHOMA
     Dosage: 50 MG, UNK
  5. THERARUBICIN [Concomitant]
     Indication: LYMPHOMA
     Dosage: 20 MG, UNK
  6. RITUXIMAB [Suspect]
     Indication: LYMPHOMA
     Dosage: 580 MG, UNK
     Route: 042
     Dates: start: 20110106, end: 20110106
  7. TAKEPRON [Concomitant]
     Indication: PRODUCT USED FOR UNKNOWN INDICATION
     Dosage: 80 MG, UNK
  8. ENDOXAN [Concomitant]
     Indication: LYMPHOMA

REACTIONS (2)
  - PLEURAL EFFUSION [None]
  - RESPIRATORY DISORDER [None]
